FAERS Safety Report 7134168-3 (Version None)
Quarter: 2010Q4

REPORT INFORMATION
  Report Type: 
  Country: None (occurrence: None)
  Receive Date: 20101203
  Receipt Date: 20101126
  Transmission Date: 20110411
  Serious: Yes (Other)
  Sender: FDA-Public Use
  Company Number: GB-JNJFOC-20101200720

PATIENT

DRUGS (2)
  1. IMODIUM [Suspect]
     Indication: ILL-DEFINED DISORDER
     Route: 065
  2. MANY OTHER UNSPECIFIED MEDICATIONS [Suspect]
     Indication: ILL-DEFINED DISORDER
     Route: 065

REACTIONS (1)
  - LONG QT SYNDROME [None]
